FAERS Safety Report 10073778 (Version 2)
Quarter: 2014Q2

REPORT INFORMATION
  Report Type: Spontaneous
  Country: CA (occurrence: CA)
  Receive Date: 20140411
  Receipt Date: 20140411
  Transmission Date: 20141212
  Serious: Yes (Other)
  Sender: FDA-Public Use
  Company Number: CA-BAXTER-2014BAX016842

PATIENT
  Age: 76 Year
  Sex: Female

DRUGS (5)
  1. DIANEAL PD4 SOLUTION WITH 1.5% DEXTROSE AND 2.5 MEQ/L CALCIUM [Suspect]
     Indication: RENAL FAILURE CHRONIC
     Route: 033
     Dates: start: 2011
  2. DIANEAL PD4 SOLUTION WITH 2.5% DEXTROSE AND 2.5 MEQ/L CALCIUM [Suspect]
     Indication: RENAL FAILURE CHRONIC
     Route: 033
     Dates: start: 2011
  3. EXTRANEAL [Suspect]
     Indication: RENAL FAILURE CHRONIC
     Route: 033
     Dates: start: 2011
  4. FERROUS SULFATE [Concomitant]
     Indication: HORMONE THERAPY
     Route: 048
  5. EPREX [Concomitant]
     Indication: HORMONE THERAPY

REACTIONS (4)
  - Gastric haemorrhage [Unknown]
  - Intestinal polyp [Unknown]
  - Blood pressure abnormal [Recovered/Resolved]
  - Weight increased [Not Recovered/Not Resolved]
